FAERS Safety Report 13463546 (Version 2)
Quarter: 2017Q2

REPORT INFORMATION
  Report Type: Spontaneous
  Country: US (occurrence: US)
  Receive Date: 20170420
  Receipt Date: 20170509
  Transmission Date: 20170830
  Serious: Yes (Hospitalization, Other)
  Sender: FDA-Public Use
  Company Number: US-PFIZER INC-2017169479

PATIENT
  Sex: Female

DRUGS (5)
  1. TIKOSYN [Suspect]
     Active Substance: DOFETILIDE
     Indication: ATRIAL FIBRILLATION
     Dosage: 500 MCG (UNSPECIFIED FREQUENCY)
  2. TIKOSYN [Suspect]
     Active Substance: DOFETILIDE
     Dosage: 250 MCG (UNSPECIFIED FREQUENCY)
  3. COUMADIN [Concomitant]
     Active Substance: WARFARIN SODIUM
     Dosage: UNKNOWN DOSE
  4. POTASSIUM CHLORIDE. [Suspect]
     Active Substance: POTASSIUM CHLORIDE
     Dosage: UNKNOWN DOSE
  5. HYDROCHLOROTHIAZIDE. [Suspect]
     Active Substance: HYDROCHLOROTHIAZIDE
     Dosage: 12.5 MG (UNSPECIFIED FREQUENCY)

REACTIONS (5)
  - Blood creatinine increased [Unknown]
  - Electrocardiogram QT prolonged [Recovered/Resolved]
  - Blood urea increased [Unknown]
  - Dehydration [Unknown]
  - Gastrointestinal haemorrhage [Unknown]

NARRATIVE: CASE EVENT DATE: 200703
